FAERS Safety Report 15121625 (Version 8)
Quarter: 2021Q3

REPORT INFORMATION
  Report Type: Report from Study
  Country: JP (occurrence: JP)
  Receive Date: 20180709
  Receipt Date: 20210921
  Transmission Date: 20211014
  Serious: Yes (Hospitalization)
  Sender: FDA-Public Use
  Company Number: JP-JNJFOC-20180702890

PATIENT
  Age: 63 Year
  Sex: Male
  Weight: 60 kg

DRUGS (9)
  1. DARATUMUMAB [Suspect]
     Active Substance: DARATUMUMAB
     Dosage: CYCLE 42
     Route: 042
     Dates: start: 20180731
  2. LENALIDOMIDE [Suspect]
     Active Substance: LENALIDOMIDE
     Indication: PLASMA CELL MYELOMA
     Route: 048
     Dates: start: 20180428, end: 20180624
  3. LENALIDOMIDE [Suspect]
     Active Substance: LENALIDOMIDE
     Dosage: CYCLE 42
     Route: 048
     Dates: start: 20180731
  4. DEXAMETHASONE. [Suspect]
     Active Substance: DEXAMETHASONE
     Indication: PLASMA CELL MYELOMA
     Route: 048
     Dates: start: 20180428, end: 20180619
  5. DEXAMETHASONE. [Suspect]
     Active Substance: DEXAMETHASONE
     Dosage: CYCLE 42
     Route: 048
     Dates: start: 20180731
  6. LOXOPROFEN SODIUM [Concomitant]
     Active Substance: LOXOPROFEN SODIUM
     Indication: GINGIVAL PAIN
     Route: 048
     Dates: start: 20180507
  7. AMLODIPINE [Concomitant]
     Active Substance: AMLODIPINE BESYLATE
     Indication: HYPERTENSION
     Route: 048
     Dates: start: 20140402
  8. BROTIZOLAM [Concomitant]
     Active Substance: BROTIZOLAM
     Indication: INSOMNIA
     Route: 048
     Dates: start: 20150817
  9. DARATUMUMAB [Suspect]
     Active Substance: DARATUMUMAB
     Indication: PLASMA CELL MYELOMA
     Dosage: 16 MG/KG
     Route: 042
     Dates: start: 20150428, end: 20180605

REACTIONS (1)
  - Infective spondylitis [Recovered/Resolved]

NARRATIVE: CASE EVENT DATE: 20180623
